FAERS Safety Report 15324148 (Version 3)
Quarter: 2018Q3

REPORT INFORMATION
  Report Type: Spontaneous
  Country: DE (occurrence: DE)
  Receive Date: 20180828
  Receipt Date: 20180912
  Transmission Date: 20181010
  Serious: Yes (Hospitalization, Other)
  Sender: FDA-Public Use
  Company Number: DE-BRISTOL-MYERS SQUIBB COMPANY-BMS-2018-079118

PATIENT
  Age: 54 Year
  Sex: Female

DRUGS (9)
  1. SUMATRIPTAN. [Concomitant]
     Active Substance: SUMATRIPTAN
     Indication: PRODUCT USED FOR UNKNOWN INDICATION
     Route: 065
  2. NIVOLUMAB [Suspect]
     Active Substance: NIVOLUMAB
     Indication: MALIGNANT MELANOMA
     Dosage: UNK
     Route: 065
     Dates: start: 201503
  3. DEXAMETHASONE. [Suspect]
     Active Substance: DEXAMETHASONE
     Indication: PRODUCT USED FOR UNKNOWN INDICATION
     Dosage: 8 MG SINCE MORE THAN 12WEEKS
     Route: 065
  4. IPILIMUMAB [Suspect]
     Active Substance: IPILIMUMAB
     Indication: MALIGNANT MELANOMA
     Dosage: UNK
     Route: 065
     Dates: start: 201503
  5. CALCIUM [Concomitant]
     Active Substance: CALCIUM
     Indication: PRODUCT USED FOR UNKNOWN INDICATION
     Route: 065
  6. METAMIZOLE [Suspect]
     Active Substance: METAMIZOLE
     Indication: PRODUCT USED FOR UNKNOWN INDICATION
     Route: 065
  7. PANTOPRAZOLE [Concomitant]
     Active Substance: PANTOPRAZOLE
     Indication: PRODUCT USED FOR UNKNOWN INDICATION
     Route: 065
  8. BISOPROLOL [Concomitant]
     Active Substance: BISOPROLOL
     Indication: PRODUCT USED FOR UNKNOWN INDICATION
     Route: 065
  9. L?THYROXINE                        /00068001/ [Concomitant]
     Active Substance: LEVOTHYROXINE
     Indication: PRODUCT USED FOR UNKNOWN INDICATION
     Route: 065

REACTIONS (33)
  - Abdominal pain [Unknown]
  - Swelling face [Unknown]
  - Urinary tract infection [Unknown]
  - Renal disorder [Unknown]
  - Hepatorenal syndrome [Recovered/Resolved]
  - Metastases to central nervous system [Unknown]
  - Cataract [Unknown]
  - Cushingoid [Unknown]
  - Rash macular [Unknown]
  - Abdominal distension [Unknown]
  - Urinary retention [Unknown]
  - Ascites [Unknown]
  - Pituitary tumour benign [Unknown]
  - Hepatic steatosis [Unknown]
  - Anuria [Unknown]
  - Fatigue [Unknown]
  - Pyrexia [Unknown]
  - Thyroxine free decreased [Unknown]
  - Acute kidney injury [Unknown]
  - Hepatosplenomegaly [Unknown]
  - Renal failure [Unknown]
  - Erythema [Unknown]
  - Drug eruption [Unknown]
  - Metastases to liver [Unknown]
  - Liver disorder [Unknown]
  - Myalgia [Unknown]
  - Diplopia [Unknown]
  - Dyspnoea [Unknown]
  - Hepatic failure [Unknown]
  - Muscle spasms [Unknown]
  - Cough [Unknown]
  - Metastases to lung [Unknown]
  - Solar dermatitis [Unknown]
